FAERS Safety Report 9175311 (Version 1)
Quarter: 2013Q1

REPORT INFORMATION
  Report Type: Spontaneous
  Country: BR (occurrence: BR)
  Receive Date: 20130320
  Receipt Date: 20130320
  Transmission Date: 20140127
  Serious: Yes (Hospitalization, Other)
  Sender: FDA-Public Use
  Company Number: BR-PFIZER INC-2013086142

PATIENT
  Age: 65 Year
  Sex: Male

DRUGS (1)
  1. CELEBRA [Suspect]
     Indication: ARTHRITIS
     Dosage: 1 CAPSULE (200 MG), 1X/DAY
     Dates: start: 2003

REACTIONS (2)
  - Infarction [Unknown]
  - Diabetes mellitus [Unknown]
